FAERS Safety Report 20257359 (Version 1)
Quarter: 2021Q4

REPORT INFORMATION
  Report Type: Spontaneous
  Country: GB (occurrence: GB)
  Receive Date: 20211230
  Receipt Date: 20211230
  Transmission Date: 20220304
  Serious: Yes (Life-Threatening, Other)
  Sender: FDA-Public Use
  Company Number: None

PATIENT
  Age: 63 Year
  Sex: Male
  Weight: 85 kg

DRUGS (1)
  1. NAPROXEN [Suspect]
     Active Substance: NAPROXEN
     Indication: Anaphylactic reaction
     Dosage: 500 MILLIGRAM, BID (500MG BD)
     Route: 048
     Dates: start: 20211214, end: 20211221

REACTIONS (5)
  - Condition aggravated [Unknown]
  - Anaphylactic reaction [Recovered/Resolved]
  - Swollen tongue [Unknown]
  - Rash [Unknown]
  - Off label use [Unknown]

NARRATIVE: CASE EVENT DATE: 20211214
